FAERS Safety Report 8866649 (Version 1)
Quarter: 2012Q4

REPORT INFORMATION
  Report Type: 
  Country: US (occurrence: US)
  Receive Date: 20121025
  Receipt Date: 20121025
  Transmission Date: 20130627
  Serious: No
  Sender: FDA-Public Use
  Company Number: US-AMGEN-USASP2012012915

PATIENT
  Age: 65 Year
  Sex: Female

DRUGS (2)
  1. ENBREL [Suspect]
     Indication: PRODUCT USED FOR UNKNOWN INDICATION
     Dosage: 50 mg, qwk
     Dates: start: 200807
  2. METHOTREXATE [Concomitant]

REACTIONS (3)
  - Wheezing [Recovering/Resolving]
  - White blood cell count decreased [Unknown]
  - Bronchitis [Recovering/Resolving]
